FAERS Safety Report 7332493-4 (Version None)
Quarter: 2011Q1

REPORT INFORMATION
  Report Type: 
  Country: None (occurrence: None)
  Receive Date: 20110304
  Receipt Date: 20110224
  Transmission Date: 20110831
  Serious: Yes (Other)
  Sender: FDA-Public Use
  Company Number: GB-ELI_LILLY_AND_COMPANY-GB201102006698

PATIENT
  Sex: Male
  Weight: 123.4 kg

DRUGS (7)
  1. SIMVASTATIN [Concomitant]
     Dosage: 40 MG, DAILY (1/D)
     Route: 048
  2. FENOFIBRATE [Concomitant]
     Dosage: 200 MG, DAILY (1/D)
     Route: 048
  3. LANSOPRAZOLE [Concomitant]
     Dosage: 30 MG, DAILY (1/D)
  4. HYDROCHLOROTHIAZIDE [Concomitant]
     Dosage: 12.5 MG, DAILY (1/D)
  5. BYETTA [Suspect]
     Indication: TYPE 2 DIABETES MELLITUS
     Dosage: 5 UG, UNKNOWN
     Route: 058
     Dates: start: 20100906, end: 20100910
  6. ACTOPLUS MET [Concomitant]
     Dosage: 1 D/F, 3/D
     Route: 048
  7. LOSARTAN POTASSIUM [Concomitant]
     Dosage: 50 MG, DAILY (1/D)

REACTIONS (1)
  - HALLUCINATION, VISUAL [None]
